FAERS Safety Report 8401890-8 (Version None)
Quarter: 2012Q2

REPORT INFORMATION
  Report Type: 
  Country: None (occurrence: None)
  Receive Date: 20120601
  Receipt Date: 20120402
  Transmission Date: 20120825
  Serious: No
  Sender: FDA-Public Use
  Company Number: US-ABBOTT-10P-163-0801199-00

PATIENT
  Age: 49 Year
  Sex: Male

DRUGS (4)
  1. FENTANYL-100 [Concomitant]
     Indication: PAIN
     Dates: start: 20110801, end: 20111201
  2. DRONABINOL [Suspect]
     Indication: DECREASED APPETITE
     Dosage: DAILY DOSE: 10 MILLIGRAM(S)
     Route: 048
     Dates: start: 20110801, end: 20111231
  3. DIAZEPAM [Concomitant]
     Indication: ANXIETY
     Dates: start: 20110401
  4. HYDROCODONE BITARTRATE AND ACETAMINOPHEN [Concomitant]
     Indication: PAIN
     Dates: start: 20110801

REACTIONS (1)
  - DRUG INEFFECTIVE [None]
